FAERS Safety Report 5392663-1 (Version None)
Quarter: 2007Q3

REPORT INFORMATION
  Report Type: 
  Country: None (occurrence: None)
  Receive Date: 20070720
  Receipt Date: 20070711
  Transmission Date: 20080115
  Serious: Yes (Congenital Anomaly)
  Sender: FDA-Public Use
  Company Number: GB-ABBOTT-05P-167-0292428-00

PATIENT
  Sex: Male

DRUGS (1)
  1. VALPROATE SODIUM [Suspect]
     Indication: DRUG EXPOSURE DURING PREGNANCY
     Route: 064

REACTIONS (16)
  - AFFECT LABILITY [None]
  - CONGENITAL CUTIS LAXA [None]
  - COORDINATION ABNORMAL [None]
  - CRYING [None]
  - DYSGRAPHIA [None]
  - DYSLEXIA [None]
  - DYSMORPHISM [None]
  - DYSPHASIA [None]
  - DYSPRAXIA [None]
  - FOETAL ANTICONVULSANT SYNDROME [None]
  - FOOT DEFORMITY [None]
  - HYPERACUSIS [None]
  - HYPOSPADIAS [None]
  - LEARNING DISORDER [None]
  - LIGAMENT LAXITY [None]
  - PHYSICAL EXAMINATION ABNORMAL [None]
